FAERS Safety Report 4614745-1 (Version None)
Quarter: 2005Q2

REPORT INFORMATION
  Report Type: 
  Country: None (occurrence: None)
  Receive Date: 20050311
  Receipt Date: 20041103
  Transmission Date: 20051028
  Serious: No
  Sender: FDA-Public Use
  Company Number: 2004-BP-11294BP

PATIENT
  Age: 85 Year
  Sex: Female

DRUGS (6)
  1. SPIRIVA [Suspect]
     Indication: CHRONIC OBSTRUCTIVE PULMONARY DISEASE
     Dosage: 18 MCG (18 MCG, QD), IH
     Route: 055
     Dates: start: 20041010, end: 20041021
  2. CALCIUM (CALCIUM) [Concomitant]
  3. MAXAIR [Concomitant]
  4. SINGULAIR (MONTELUKAST) [Concomitant]
  5. SEREVENT [Concomitant]
  6. FLONASE [Concomitant]

REACTIONS (1)
  - ABDOMINAL PAIN UPPER [None]
